FAERS Safety Report 9921148 (Version 1)
Quarter: 2014Q1

REPORT INFORMATION
  Report Type: Spontaneous
  Country: US (occurrence: US)
  Receive Date: 20140225
  Receipt Date: 20140225
  Transmission Date: 20141002
  Serious: No
  Sender: FDA-Public Use
  Company Number: US-009507513-1402USA010821

PATIENT
  Age: 65 Year
  Sex: Female

DRUGS (2)
  1. JANUVIA [Suspect]
     Indication: TYPE 2 DIABETES MELLITUS
     Dosage: ONE PILL ONCE A DAY, QD
     Route: 048
     Dates: start: 201108, end: 201201
  2. RAMIPRIL [Concomitant]
     Route: 048

REACTIONS (1)
  - Weight increased [Recovered/Resolved]
